FAERS Safety Report 6578019-4 (Version None)
Quarter: 2010Q1

REPORT INFORMATION
  Report Type: 
  Country: None (occurrence: None)
  Receive Date: 20100211
  Receipt Date: 20091218
  Transmission Date: 20100710
  Serious: Yes (Other)
  Sender: FDA-Public Use
  Company Number: US-BRISTOL-MYERS SQUIBB COMPANY-14899595

PATIENT
  Age: 63 Year
  Sex: Female

DRUGS (7)
  1. IXEMPRA KIT [Suspect]
     Indication: BREAST CANCER
     Dosage: 2ND INFUSION:24NOV09 TOTAL COURSE:3
     Route: 042
     Dates: start: 20091110
  2. CIMETIDINE [Concomitant]
     Indication: PREMEDICATION
     Route: 042
  3. DECADRON [Concomitant]
     Indication: PREMEDICATION
     Route: 042
  4. BENADRYL [Concomitant]
     Indication: PREMEDICATION
     Route: 042
  5. ALOXI [Concomitant]
     Indication: PREMEDICATION
  6. VICODIN [Concomitant]
  7. PERCOCET [Concomitant]

REACTIONS (1)
  - DYSPNOEA [None]
